FAERS Safety Report 24914300 (Version 1)
Quarter: 2025Q1

REPORT INFORMATION
  Report Type: Spontaneous
  Country: US (occurrence: US)
  Receive Date: 20250203
  Receipt Date: 20250203
  Transmission Date: 20250409
  Serious: No
  Sender: AMGEN
  Company Number: US-AMGEN-USASP2025018079

PATIENT
  Age: 47 Year
  Sex: Female

DRUGS (1)
  1. AMJEVITA [Suspect]
     Active Substance: ADALIMUMAB-ATTO
     Indication: Crohn^s disease
     Dosage: 40 MILLIGRAM PER 0.4 MILLILITRE, QWK
     Route: 065
     Dates: start: 202501

REACTIONS (3)
  - Device difficult to use [Unknown]
  - Injection site pain [Unknown]
  - Off label use [Unknown]

NARRATIVE: CASE EVENT DATE: 20250101
